FAERS Safety Report 6462338-6 (Version None)
Quarter: 2009Q4

REPORT INFORMATION
  Report Type: 
  Country: None (occurrence: None)
  Receive Date: 20091130
  Receipt Date: 20091119
  Transmission Date: 20100525
  Serious: Yes (Hospitalization)
  Sender: FDA-Public Use
  Company Number: GB-ASTRAZENECA-2009SE23409

PATIENT
  Age: 13 Year
  Sex: Female

DRUGS (1)
  1. LIGNOSPAN [Suspect]
     Indication: LOCAL ANAESTHESIA
     Route: 004
     Dates: start: 20061023, end: 20061023

REACTIONS (2)
  - TREMOR [None]
  - TYPE I HYPERSENSITIVITY [None]
